FAERS Safety Report 19866186 (Version 1)
Quarter: 2021Q3

REPORT INFORMATION
  Report Type: Spontaneous
  Country: GB (occurrence: GB)
  Receive Date: 20210921
  Receipt Date: 20210921
  Transmission Date: 20211014
  Serious: Yes (Other)
  Sender: FDA-Public Use
  Company Number: GB-IPSEN BIOPHARMACEUTICALS, INC.-2021-22560

PATIENT
  Age: 61 Year
  Sex: Male

DRUGS (1)
  1. SOMATULINE AUTOGEL [Suspect]
     Active Substance: LANREOTIDE ACETATE
     Indication: NEUROENDOCRINE TUMOUR
     Route: 065

REACTIONS (3)
  - Intestinal obstruction [Unknown]
  - Disease progression [Unknown]
  - Circulatory collapse [Unknown]

NARRATIVE: CASE EVENT DATE: 202011
